FAERS Safety Report 18603895 (Version 1)
Quarter: 2020Q4

REPORT INFORMATION
  Report Type: Spontaneous
  Country: US (occurrence: US)
  Receive Date: 20201210
  Receipt Date: 20201210
  Transmission Date: 20210114
  Serious: Yes (Death)
  Sender: FDA-Public Use
  Company Number: None

PATIENT
  Age: 75 Year
  Sex: Male
  Weight: 88 kg

DRUGS (1)
  1. VEKLURY [Suspect]
     Active Substance: REMDESIVIR
     Indication: COVID-19
     Route: 042
     Dates: start: 20201207, end: 20201207

REACTIONS (6)
  - Oxygen saturation decreased [None]
  - Tachycardia [None]
  - Respiration abnormal [None]
  - Cough [None]
  - Dyspnoea [None]
  - Unresponsive to stimuli [None]

NARRATIVE: CASE EVENT DATE: 20201207
